FAERS Safety Report 6108129-7 (Version None)
Quarter: 2009Q1

REPORT INFORMATION
  Report Type: 
  Country: None (occurrence: None)
  Receive Date: 20090305
  Receipt Date: 20090305
  Transmission Date: 20090719
  Serious: Yes (Hospitalization)
  Sender: FDA-Public Use
  Company Number: None

PATIENT
  Sex: Female
  Weight: 69.09 kg

DRUGS (4)
  1. CISPLATIN [Suspect]
     Dosage: 82 MG
  2. DOXORUBICIN HCL [Suspect]
     Dosage: 73 MG
  3. G-CSF (FILGRASTIM, AMGEN) [Suspect]
     Dosage: 6 MG
  4. TAXOL [Suspect]
     Dosage: 261 MG

REACTIONS (8)
  - ASTHENIA [None]
  - COUGH [None]
  - DEHYDRATION [None]
  - DIARRHOEA [None]
  - NAUSEA [None]
  - NEUTROPENIA [None]
  - RHINORRHOEA [None]
  - URINARY TRACT INFECTION [None]
